FAERS Safety Report 12270313 (Version 1)
Quarter: 2016Q2

REPORT INFORMATION
  Report Type: Spontaneous
  Country: GB (occurrence: None)
  Receive Date: 20160414
  Receipt Date: 20160414
  Transmission Date: 20160815
  Serious: No
  Sender: FDA-Public Use
  Company Number: None

PATIENT
  Sex: Female
  Weight: 76.2 kg

DRUGS (3)
  1. MIRENA [Suspect]
     Active Substance: LEVONORGESTREL
  2. IBROPRUFEN/PARACETAMOL [Concomitant]
  3. RHODIALIA ROSEA [Concomitant]

REACTIONS (11)
  - Back pain [None]
  - Discomfort [None]
  - Syncope [None]
  - Peripheral swelling [None]
  - Fatigue [None]
  - Breast pain [None]
  - Haemorrhage [None]
  - Arthralgia [None]
  - Feeling abnormal [None]
  - Breast mass [None]
  - Anxiety [None]
